FAERS Safety Report 11749498 (Version 1)
Quarter: 2015Q4

REPORT INFORMATION
  Report Type: Spontaneous
  Country: HU (occurrence: HU)
  Receive Date: 20151118
  Receipt Date: 20151118
  Transmission Date: 20160304
  Serious: Yes (Other)
  Sender: FDA-Public Use
  Company Number: HU-WATSON-2015-19273

PATIENT
  Age: 46 Year
  Sex: Female

DRUGS (1)
  1. LEVOSERT [Suspect]
     Active Substance: LEVONORGESTREL
     Indication: PRODUCT USED FOR UNKNOWN INDICATION
     Dosage: UNK
     Route: 015

REACTIONS (1)
  - Haemorrhage [Unknown]
